FAERS Safety Report 4847822-0 (Version None)
Quarter: 2005Q4

REPORT INFORMATION
  Report Type: 
  Country: None (occurrence: None)
  Receive Date: 20051206
  Receipt Date: 20051123
  Transmission Date: 20060501
  Serious: Yes (Hospitalization, Other)
  Sender: FDA-Public Use
  Company Number: 2005160782

PATIENT
  Sex: Female

DRUGS (4)
  1. DETROL [Suspect]
     Indication: RENAL DISORDER
  2. ACTONEL [Suspect]
     Indication: ARTHRITIS
  3. TRICOR [Concomitant]
  4. ALL OTHER THERAPEUTIC PRODUCTS (ALL OTHER THERAPEUTIC PRODUCTS) [Concomitant]

REACTIONS (8)
  - ARTHRITIS [None]
  - BLOOD CHOLESTEROL INCREASED [None]
  - CHEST PAIN [None]
  - HEART RATE ABNORMAL [None]
  - HYPERTENSION [None]
  - KNEE ARTHROPLASTY [None]
  - MYALGIA [None]
  - NAUSEA [None]
